FAERS Safety Report 14268330 (Version 1)
Quarter: 2017Q4

REPORT INFORMATION
  Report Type: Spontaneous
  Country: US (occurrence: US)
  Receive Date: 20171211
  Receipt Date: 20171211
  Transmission Date: 20180321
  Serious: Yes (Disabling)
  Sender: FDA-Public Use
  Company Number: None

PATIENT
  Sex: Female
  Weight: 49.5 kg

DRUGS (5)
  1. CALCIUM [Concomitant]
     Active Substance: CALCIUM
  2. VITAMIN D [Concomitant]
     Active Substance: CHOLECALCIFEROL
  3. VITAMIN K2 [Concomitant]
     Active Substance: MENAQUINONE 6
  4. LEVOTHYROXINE. [Concomitant]
     Active Substance: LEVOTHYROXINE
  5. PROLIA [Suspect]
     Active Substance: DENOSUMAB
     Indication: OSTEOPOROSIS
     Dosage: SUBCUTANEOUS EVERY 6 MONTHS
     Route: 058
     Dates: start: 20170303, end: 20170919

REACTIONS (5)
  - Bone pain [None]
  - Arthralgia [None]
  - Exercise tolerance decreased [None]
  - Musculoskeletal discomfort [None]
  - Pain in extremity [None]

NARRATIVE: CASE EVENT DATE: 20171002
